FAERS Safety Report 20705502 (Version 3)
Quarter: 2022Q4

REPORT INFORMATION
  Report Type: Spontaneous
  Country: ES (occurrence: ES)
  Receive Date: 20220413
  Receipt Date: 20221228
  Transmission Date: 20230113
  Serious: No
  Sender: FDA-Public Use
  Company Number: ES-AMICUS THERAPEUTICS, INC.-AMI_1769

PATIENT
  Age: 60 Year
  Sex: Female

DRUGS (2)
  1. GALAFOLD [Suspect]
     Active Substance: MIGALASTAT HYDROCHLORIDE
     Indication: Fabry^s disease
     Dosage: UNK
     Route: 048
     Dates: start: 201810
  2. GALAFOLD [Suspect]
     Active Substance: MIGALASTAT HYDROCHLORIDE
     Dosage: UNK
     Route: 048
     Dates: start: 20221201

REACTIONS (1)
  - Blood creatine phosphokinase increased [Unknown]
